FAERS Safety Report 18174406 (Version 1)
Quarter: 2020Q3

REPORT INFORMATION
  Report Type: Spontaneous
  Country: US (occurrence: US)
  Receive Date: 20200820
  Receipt Date: 20200820
  Transmission Date: 20201103
  Serious: Yes (Hospitalization)
  Sender: FDA-Public Use
  Company Number: US-HORIZON-RAV-0269-2020

PATIENT
  Age: 4 Month
  Sex: Female

DRUGS (2)
  1. RAVICTI [Suspect]
     Active Substance: GLYCEROL PHENYLBUTYRATE
     Indication: ARGININOSUCCINATE LYASE DEFICIENCY
     Dosage: 0.1ML THREE TIMES DAILY
     Route: 048
  2. L?ARGININE [Concomitant]
     Active Substance: ARGININE

REACTIONS (1)
  - Argininosuccinate lyase deficiency [Not Recovered/Not Resolved]
